FAERS Safety Report 13884850 (Version 3)
Quarter: 2017Q4

REPORT INFORMATION
  Report Type: Spontaneous
  Country: CN (occurrence: CN)
  Receive Date: 20170821
  Receipt Date: 20171009
  Transmission Date: 20180320
  Serious: Yes (Hospitalization, Disabling)
  Sender: FDA-Public Use
  Company Number: CN-ROCHE-1976801

PATIENT
  Age: 31 Year
  Sex: Male
  Weight: 56 kg

DRUGS (9)
  1. GLUCOSE [Suspect]
     Active Substance: DEXTROSE
     Indication: COLON CANCER
     Route: 041
     Dates: start: 20170608, end: 20170608
  2. XELODA [Suspect]
     Active Substance: CAPECITABINE
     Dosage: 2.0G AFTER BREAKFAST AND 1.5G AFTER DINNER
     Route: 048
     Dates: start: 20170629, end: 20170712
  3. OXALIPLATIN ACCORD [Suspect]
     Active Substance: OXALIPLATIN
     Route: 041
     Dates: start: 20170629, end: 20170629
  4. GLUCOSE [Concomitant]
     Active Substance: DEXTROSE
     Route: 041
     Dates: start: 20170811, end: 20170811
  5. OXALIPLATIN ACCORD [Suspect]
     Active Substance: OXALIPLATIN
     Indication: COLON CANCER
     Route: 041
     Dates: start: 20170608, end: 20170608
  6. XELODA [Suspect]
     Active Substance: CAPECITABINE
     Indication: COLON CANCER
     Dosage: 2.0G IN THE MORNING AND 1.5G AT NIGHT
     Route: 048
     Dates: start: 20170608, end: 20170621
  7. XELODA [Suspect]
     Active Substance: CAPECITABINE
     Dosage: 2.0G AFTER BREAKFAST AND 1.5G AFTER DINNER(SH2313)
     Route: 048
     Dates: start: 20170811, end: 20170824
  8. OXALIPLATIN ACCORD [Suspect]
     Active Substance: OXALIPLATIN
     Route: 041
     Dates: start: 20170811, end: 20170811
  9. GLUCOSE [Concomitant]
     Active Substance: DEXTROSE
     Route: 041
     Dates: start: 20170629, end: 20170629

REACTIONS (4)
  - White blood cell count decreased [Recovering/Resolving]
  - Hepatic function abnormal [Recovering/Resolving]
  - Neutrophil count decreased [Recovering/Resolving]
  - Platelet count decreased [Recovering/Resolving]

NARRATIVE: CASE EVENT DATE: 20170617
